FAERS Safety Report 22666520 (Version 2)
Quarter: 2024Q3

REPORT INFORMATION
  Report Type: Report from Study
  Country: IT (occurrence: IT)
  Receive Date: 20230703
  Receipt Date: 20240715
  Transmission Date: 20241017
  Serious: Yes (Other)
  Sender: TEVA
  Company Number: None

PATIENT
  Age: 17 Year
  Sex: Female
  Weight: 43 kg

DRUGS (3)
  1. CISPLATIN [Suspect]
     Active Substance: CISPLATIN
     Indication: Medulloblastoma
     Dosage: CISPLATIN TEVA ITALY
     Route: 042
     Dates: start: 20230502, end: 20230502
  2. VINCRISTINE [Suspect]
     Active Substance: VINCRISTINE
     Indication: Medulloblastoma
     Dosage: DOSAGE TEXT: 1.99 MG/DAY ON 02,09,16/05/23; VINCRISTINA TEVA ITALY
     Route: 042
     Dates: start: 20230502, end: 20230516
  3. LOMUSTINE [Suspect]
     Active Substance: LOMUSTINE
     Indication: Medulloblastoma
     Dosage: DOSAGE TEXT: 40 MG X 2VV/DAY
     Route: 048
     Dates: start: 20230502, end: 20230502

REACTIONS (3)
  - Pancytopenia [Recovered/Resolved]
  - Abdominal pain [Recovered/Resolved]
  - Constipation [Recovered/Resolved]

NARRATIVE: CASE EVENT DATE: 20230509
